FAERS Safety Report 19067260 (Version 2)
Quarter: 2021Q4

REPORT INFORMATION
  Report Type: Spontaneous
  Country: GB (occurrence: GB)
  Receive Date: 20210329
  Receipt Date: 20211112
  Transmission Date: 20220304
  Serious: Yes (Other)
  Sender: FDA-Public Use
  Company Number: GB-MHRA-EYC 00243926

PATIENT
  Age: 35 Year
  Sex: Female
  Weight: 79.82 kg

DRUGS (6)
  1. CEPHALEXIN [Suspect]
     Active Substance: CEPHALEXIN
     Indication: Skin infection
     Dosage: 500 MILLIGRAM
     Route: 048
     Dates: start: 20210311, end: 20210312
  2. CITALOPRAM [Concomitant]
     Active Substance: CITALOPRAM HYDROBROMIDE
     Indication: Ill-defined disorder
     Dosage: UNK
     Route: 065
  3. BECLOMETHASONE\FORMOTEROL [Concomitant]
     Active Substance: BECLOMETHASONE\FORMOTEROL
     Indication: Ill-defined disorder
     Dosage: UNK
     Route: 065
  4. OMEPRAZOLE [Concomitant]
     Active Substance: OMEPRAZOLE
     Indication: Ill-defined disorder
     Dosage: UNK
     Route: 065
  5. ALBUTEROL SULFATE [Concomitant]
     Active Substance: ALBUTEROL SULFATE
     Indication: Ill-defined disorder
     Dosage: UNK
     Route: 065
  6. VITAMIN D [Concomitant]
     Active Substance: VITAMIN D NOS
     Indication: Ill-defined disorder
     Dosage: UNK
     Route: 065

REACTIONS (2)
  - Rash pruritic [Not Recovered/Not Resolved]
  - Sleep disorder [Unknown]

NARRATIVE: CASE EVENT DATE: 20210312
